FAERS Safety Report 8011277-8 (Version None)
Quarter: 2011Q4

REPORT INFORMATION
  Report Type: 
  Country: None (occurrence: None)
  Receive Date: 20111227
  Receipt Date: 20111227
  Transmission Date: 20120403
  Serious: Yes (Hospitalization, Other)
  Sender: FDA-Public Use
  Company Number: None

PATIENT
  Sex: Female

DRUGS (1)
  1. MEFLOQUINE HYDROCHLORIDE [Suspect]
     Indication: MALARIA
     Dosage: UNKNOWN
     Route: 048

REACTIONS (6)
  - PSYCHOTIC DISORDER [None]
  - PERSONALITY CHANGE [None]
  - WEIGHT DECREASED [None]
  - DEPRESSION [None]
  - MOOD ALTERED [None]
  - DECREASED APPETITE [None]
